FAERS Safety Report 8785314 (Version 1)
Quarter: 2012Q4

REPORT INFORMATION
  Report Type: 
  Country: US (occurrence: US)
  Receive Date: 20120914
  Receipt Date: 20120914
  Transmission Date: 20130627
  Serious: No
  Sender: FDA-Public Use
  Company Number: US-PFIZER INC-2012224841

PATIENT
  Age: 53 Year
  Sex: Female
  Weight: 76.64 kg

DRUGS (2)
  1. AROMASIN [Suspect]
     Indication: BREAST CANCER
     Dosage: 25 mg, 1x/day
     Route: 048
  2. CITALOPRAM [Concomitant]
     Indication: DEPRESSION
     Dosage: UNK

REACTIONS (3)
  - Dizziness [Recovered/Resolved]
  - Malaise [Recovered/Resolved]
  - Labyrinthitis [Recovered/Resolved]
